FAERS Safety Report 23871903 (Version 1)
Quarter: 2024Q2

REPORT INFORMATION
  Report Type: Spontaneous
  Country: US (occurrence: US)
  Receive Date: 20240520
  Receipt Date: 20240520
  Transmission Date: 20240716
  Serious: No
  Sender: FDA-Public Use
  Company Number: US-AUROBINDO-AUR-APL-2024-012306

PATIENT
  Age: 53 Year
  Sex: Female
  Weight: 68.038 kg

DRUGS (1)
  1. OMEPRAZOLE [Suspect]
     Active Substance: DONEPEZIL HYDROCHLORIDE\OMEPRAZOLE\OMEPRAZOLE MAGNESIUM
     Indication: Dyspepsia
     Dosage: 1 DOSAGE FORM, ONCE A DAY  (NDC NUMBER 57237-0161-99)
     Route: 048

REACTIONS (1)
  - Drug ineffective [Unknown]
